FAERS Safety Report 19280887 (Version 2)
Quarter: 2021Q3

REPORT INFORMATION
  Report Type: Spontaneous
  Country: IN (occurrence: IN)
  Receive Date: 20210520
  Receipt Date: 20210812
  Transmission Date: 20211014
  Serious: Yes (Hospitalization, Other)
  Sender: FDA-Public Use
  Company Number: IN-LUPIN PHARMACEUTICALS INC.-2021-07258

PATIENT
  Age: 68 Year
  Sex: Female

DRUGS (3)
  1. DYTOR PLUS [Suspect]
     Active Substance: SPIRONOLACTONE\TORSEMIDE
     Indication: HYPERTENSION
  2. OLMESARTAN [Suspect]
     Active Substance: OLMESARTAN
     Indication: HYPERTENSION
     Dosage: UNK
     Route: 065
  3. DYTOR PLUS [Suspect]
     Active Substance: SPIRONOLACTONE\TORSEMIDE
     Indication: OEDEMA PERIPHERAL
     Dosage: UNK
     Route: 065

REACTIONS (4)
  - Hyperkalaemia [Recovered/Resolved]
  - Bradycardia [Recovered/Resolved]
  - Electrocardiogram T wave abnormal [Recovered/Resolved]
  - Metabolic acidosis [Recovered/Resolved]
